FAERS Safety Report 9443333 (Version 1)
Quarter: 2013Q3

REPORT INFORMATION
  Report Type: Spontaneous
  Country: US (occurrence: US)
  Receive Date: 20130806
  Receipt Date: 20130806
  Transmission Date: 20140515
  Serious: Yes (Death)
  Sender: FDA-Public Use
  Company Number: US-GLAXOSMITHKLINE-A1036455A

PATIENT
  Age: 74 Year
  Sex: Male

DRUGS (9)
  1. VOTRIENT [Suspect]
     Indication: SARCOMA
     Dosage: 800MG PER DAY
     Route: 048
     Dates: start: 20121116, end: 201303
  2. TYLENOL [Concomitant]
  3. OXYCODONE [Concomitant]
  4. MUCINEX [Concomitant]
  5. METOPROLOL [Concomitant]
  6. MELATONIN [Concomitant]
  7. LISINOPRIL [Concomitant]
  8. ATIVAN [Concomitant]
  9. AMLODIPINE [Concomitant]

REACTIONS (1)
  - Death [Fatal]
